FAERS Safety Report 8996078 (Version 1)
Quarter: 2013Q1

REPORT INFORMATION
  Report Type: Spontaneous
  Country: US (occurrence: US)
  Receive Date: 20130103
  Receipt Date: 20130103
  Transmission Date: 20140127
  Serious: No
  Sender: FDA-Public Use
  Company Number: US-ABBOTT-12P-163-0997750-00

PATIENT
  Sex: Male

DRUGS (2)
  1. SYNTHROID [Suspect]
     Indication: CONGENITAL HYPOTHYROIDISM
     Dates: start: 20081029
  2. CYTOMEL [Concomitant]
     Indication: CONGENITAL HYPOTHYROIDISM

REACTIONS (4)
  - Nightmare [Recovered/Resolved]
  - Screaming [Recovered/Resolved]
  - Fear [Recovered/Resolved]
  - Cold sweat [Recovered/Resolved]
